FAERS Safety Report 7994969-6 (Version None)
Quarter: 2011Q4

REPORT INFORMATION
  Report Type: 
  Country: None (occurrence: None)
  Receive Date: 20111220
  Receipt Date: 20111103
  Transmission Date: 20120403
  Serious: No
  Sender: FDA-Public Use
  Company Number: US-MYLANLABS-2011S1022876

PATIENT
  Age: 61 Year
  Sex: Female
  Weight: 54.43 kg

DRUGS (2)
  1. EVISTA [Concomitant]
     Indication: OSTEOPOROSIS
  2. LETROZOLE [Suspect]
     Indication: BREAST CANCER
     Route: 048
     Dates: start: 20110526, end: 20110823

REACTIONS (3)
  - LACERATION [None]
  - OEDEMA PERIPHERAL [None]
  - RASH [None]
